FAERS Safety Report 9215580 (Version 2)
Quarter: 2013Q2

REPORT INFORMATION
  Report Type: Spontaneous
  Country: CA (occurrence: CA)
  Receive Date: 20130408
  Receipt Date: 20130422
  Transmission Date: 20140414
  Serious: Yes (Hospitalization, Other)
  Sender: FDA-Public Use
  Company Number: CA-AMGEN-CANSP2011042165

PATIENT
  Age: 33 Year
  Sex: Female

DRUGS (5)
  1. ENBREL [Suspect]
     Indication: RHEUMATOID ARTHRITIS
     Dosage: 50 MG, QWK
     Dates: start: 20110120, end: 20120402
  2. METHOTREXATE [Concomitant]
     Dosage: UNK
  3. PREDNISONE [Concomitant]
     Dosage: UNK
  4. DICLOFENAC [Concomitant]
     Dosage: UNK
  5. SULFASALAZINE [Concomitant]
     Dosage: UNK

REACTIONS (4)
  - Arthropathy [Not Recovered/Not Resolved]
  - Malaise [Unknown]
  - Arthralgia [Unknown]
  - Drug ineffective [Not Recovered/Not Resolved]
